FAERS Safety Report 9728682 (Version 1)
Quarter: 2013Q4

REPORT INFORMATION
  Report Type: Spontaneous
  Country: US (occurrence: US)
  Receive Date: 20131204
  Receipt Date: 20131204
  Transmission Date: 20140711
  Serious: No
  Sender: FDA-Public Use
  Company Number: US-PFIZER INC-2013346155

PATIENT
  Age: 40 Year
  Sex: Female
  Weight: 61.22 kg

DRUGS (2)
  1. CHANTIX [Suspect]
     Dosage: 3 DF, SINGLE
     Dates: start: 20131201, end: 20131201
  2. TYLENOL 3 [Concomitant]
     Indication: BACK DISORDER
     Dosage: UNK

REACTIONS (4)
  - Accidental exposure to product [Unknown]
  - Vomiting [Unknown]
  - Nausea [Unknown]
  - Gastrointestinal disorder [Unknown]
